FAERS Safety Report 5189370-7 (Version None)
Quarter: 2006Q4

REPORT INFORMATION
  Report Type: 
  Country: None (occurrence: None)
  Receive Date: 20061221
  Receipt Date: 20061218
  Transmission Date: 20070319
  Serious: Yes (Hospitalization)
  Sender: FDA-Public Use
  Company Number: FR-MERCK-0612FRA00060

PATIENT
  Age: 72 Year
  Sex: Male

DRUGS (2)
  1. HYZAAR [Suspect]
     Indication: HYPERTENSION
     Route: 048
     Dates: end: 20061101
  2. ESOMEPRAZOLE MAGNESIUM [Suspect]
     Route: 048
     Dates: end: 20061101

REACTIONS (3)
  - DIARRHOEA INFECTIOUS [None]
  - HAEMOLYTIC ANAEMIA [None]
  - INFLAMMATION [None]
